FAERS Safety Report 9501033 (Version 1)
Quarter: 2013Q1

REPORT INFORMATION
  Report Type: Spontaneous
  Country: US (occurrence: None)
  Receive Date: 20130107
  Receipt Date: 20130107
  Transmission Date: 20140127
  Serious: No
  Sender: FDA-Public Use
  Company Number: PHEH2012US018077

PATIENT
  Age: 61 Year
  Sex: Male

DRUGS (6)
  1. GILENYA (FTY) CAPSULE, 0.5MG [Suspect]
     Indication: MULTIPLE SCLEROSIS
     Route: 048
     Dates: start: 20120904
  2. AMBIEN (ZOLPIDEM TARTRATE) [Concomitant]
  3. CYMBALTA (DULOXETINE HYDROCHLORIDE) [Concomitant]
  4. VICODIN (HYDROCODONE BITARTRATE, PARACETAMOL) [Concomitant]
  5. LORATIDINE [Concomitant]
  6. TRIAMTERENE (TRIAMTERENE) [Concomitant]

REACTIONS (1)
  - Pain in extremity [None]
